FAERS Safety Report 19913756 (Version 1)
Quarter: 2021Q4

REPORT INFORMATION
  Report Type: Spontaneous
  Country: FR (occurrence: FR)
  Receive Date: 20211004
  Receipt Date: 20211004
  Transmission Date: 20220303
  Serious: Yes (Other)
  Sender: FDA-Public Use
  Company Number: None

PATIENT
  Age: 23 Year
  Sex: Male

DRUGS (4)
  1. TRAMADOL [Suspect]
     Active Substance: TRAMADOL
     Indication: Product used for unknown indication
     Dosage: UNK
     Dates: start: 20210710, end: 20210710
  2. COCAINE [Suspect]
     Active Substance: COCAINE
     Indication: Product used for unknown indication
     Dosage: UNK
     Dates: start: 20210710, end: 20210710
  3. DEXTROMETHORPHAN [Suspect]
     Active Substance: DEXTROMETHORPHAN
     Indication: Product used for unknown indication
     Dosage: UNK
     Dates: start: 20210710, end: 20210710
  4. ALCOHOL [Suspect]
     Active Substance: ALCOHOL
     Indication: Product used for unknown indication
     Dosage: UNK
     Route: 048
     Dates: start: 20210710, end: 20210710

REACTIONS (7)
  - Drug abuse [Unknown]
  - Disorientation [Recovered/Resolved]
  - Nystagmus [Unknown]
  - Dyspnoea [Unknown]
  - Agitation [Recovered/Resolved]
  - Tachycardia [Unknown]
  - Miosis [Unknown]

NARRATIVE: CASE EVENT DATE: 20210710
